FAERS Safety Report 20639301 (Version 1)
Quarter: 2022Q1

REPORT INFORMATION
  Report Type: Spontaneous
  Country: US (occurrence: US)
  Receive Date: 20220326
  Receipt Date: 20220326
  Transmission Date: 20220423
  Serious: Yes (Other)
  Sender: FDA-Public Use
  Company Number: US-LUPIN PHARMACEUTICALS INC.-2022-04209

PATIENT
  Age: 32 Year
  Sex: Female

DRUGS (9)
  1. METRONIDAZOLE [Suspect]
     Active Substance: METRONIDAZOLE
     Indication: Immune tolerance induction
     Dosage: 10 MG (10MG/ML SOLUTION FROM 250MG TABLETS)
     Route: 065
  2. METRONIDAZOLE [Suspect]
     Active Substance: METRONIDAZOLE
     Dosage: 25 MG (10MG/ML SOLUTION FROM 250MG TABLETS)
     Route: 065
  3. METRONIDAZOLE [Suspect]
     Active Substance: METRONIDAZOLE
     Dosage: 50 MG (10MG/ML SOLUTION FROM 250MG TABLETS)
     Route: 065
  4. METRONIDAZOLE [Suspect]
     Active Substance: METRONIDAZOLE
     Dosage: 50 MG (10MG/ML SOLUTION FROM 250MG TABLETS)
     Route: 065
  5. METRONIDAZOLE [Suspect]
     Active Substance: METRONIDAZOLE
     Dosage: 100 MG (10MG/ML SOLUTION FROM 250MG TABLETS)
     Route: 065
  6. METRONIDAZOLE [Suspect]
     Active Substance: METRONIDAZOLE
     Dosage: 100 MG
     Route: 065
  7. METRONIDAZOLE [Suspect]
     Active Substance: METRONIDAZOLE
     Dosage: 150 MG
     Route: 065
  8. METRONIDAZOLE [Suspect]
     Active Substance: METRONIDAZOLE
     Dosage: 125 MG (HA HALF TABLET (125MG) WAS GIVEN AND TOLERATED TWICE
     Route: 065
  9. CETIRIZINE [Concomitant]
     Active Substance: CETIRIZINE HYDROCHLORIDE
     Indication: Immune tolerance induction
     Dosage: 10 MG/ML
     Route: 065

REACTIONS (1)
  - Anaphylactic reaction [Recovered/Resolved]
